FAERS Safety Report 6229064-X (Version None)
Quarter: 2009Q2

REPORT INFORMATION
  Report Type: 
  Country: None (occurrence: None)
  Receive Date: 20090601
  Receipt Date: 20081007
  Transmission Date: 20091009
  Serious: Yes (Hospitalization)
  Sender: FDA-Public Use
  Company Number: US200810001653

PATIENT
  Age: 70 Year
  Sex: Male
  Weight: 98 kg

DRUGS (5)
  1. BYETTA [Suspect]
     Indication: DIABETES MELLITUS
     Dosage: 10 UG, 2/D, SUBCUTANEOUS
     Route: 058
     Dates: start: 20071215, end: 20080718
  2. EXENATIDE PEN [Concomitant]
  3. METOPROLOL SUCCINATE [Concomitant]
  4. GLIPIZIDE [Concomitant]
  5. AMLODIPINE [Concomitant]

REACTIONS (1)
  - PANCREATITIS [None]
